FAERS Safety Report 6185277-7 (Version None)
Quarter: 2009Q2

REPORT INFORMATION
  Report Type: 
  Country: None (occurrence: None)
  Receive Date: 20090511
  Receipt Date: 20090430
  Transmission Date: 20091009
  Serious: Yes (Hospitalization, Other)
  Sender: FDA-Public Use
  Company Number: US-ROCHE-596094

PATIENT
  Sex: Female
  Weight: 50.3 kg

DRUGS (4)
  1. ACCUTANE [Suspect]
     Indication: ACNE
     Route: 065
     Dates: start: 19980330, end: 19980427
  2. ACCUTANE [Suspect]
     Route: 065
     Dates: start: 19980428, end: 19980801
  3. ACCUTANE [Suspect]
     Route: 065
     Dates: start: 19991105, end: 20000510
  4. AMPICILLIN [Concomitant]

REACTIONS (15)
  - ANAL FISSURE [None]
  - ASPARTATE AMINOTRANSFERASE INCREASED [None]
  - BLOOD BILIRUBIN INCREASED [None]
  - BLOOD CHOLESTEROL INCREASED [None]
  - BLOOD TRIGLYCERIDES INCREASED [None]
  - CROHN'S DISEASE [None]
  - DEPRESSION [None]
  - DRY SKIN [None]
  - GASTROINTESTINAL HAEMORRHAGE [None]
  - INFLAMMATORY BOWEL DISEASE [None]
  - INTESTINAL OBSTRUCTION [None]
  - INTESTINAL STENOSIS [None]
  - LIP DRY [None]
  - NEPHROLITHIASIS [None]
  - SUICIDAL IDEATION [None]
